FAERS Safety Report 4332652-9 (Version None)
Quarter: 2004Q1

REPORT INFORMATION
  Report Type: 
  Country: None (occurrence: None)
  Receive Date: 20040330
  Receipt Date: 20040330
  Transmission Date: 20041129
  Serious: Yes (Death, Hospitalization)
  Sender: FDA-Public Use
  Company Number: CAR-2004-002

PATIENT
  Age: 73 Year
  Sex: Female

DRUGS (7)
  1. SUCRALFATE [Suspect]
     Dosage: POWDER FOR ORAL SOLUTION
     Route: 048
     Dates: start: 20040203, end: 20040208
  2. FLAGYL [Concomitant]
  3. FRAXIPARINE (HEPARIN-FRACTION, CALCIUM SALT) [Concomitant]
  4. OMEPRAZOLE [Concomitant]
  5. LOPRESSOR [Concomitant]
  6. MOTILIUM [Concomitant]
  7. MODURETIC 5-50 [Concomitant]

REACTIONS (7)
  - CIRCULATORY COLLAPSE [None]
  - CLOSTRIDIUM COLITIS [None]
  - GASTROINTESTINAL HAEMORRHAGE [None]
  - HAEMOGLOBIN DECREASED [None]
  - MELAENA [None]
  - OESOPHAGITIS [None]
  - THROMBOCYTOPENIA [None]
